FAERS Safety Report 10055306 (Version 2)
Quarter: 2014Q2

REPORT INFORMATION
  Report Type: Spontaneous
  Country: US (occurrence: US)
  Receive Date: 20140403
  Receipt Date: 20140407
  Transmission Date: 20141212
  Serious: Yes (Death)
  Sender: FDA-Public Use
  Company Number: US-ROCHE-1376827

PATIENT
  Sex: Female

DRUGS (1)
  1. PERJETA [Suspect]
     Indication: BREAST CANCER
     Dosage: 420 ML/14 ML
     Route: 042
     Dates: start: 20140305

REACTIONS (1)
  - Breast cancer metastatic [Fatal]
